FAERS Safety Report 11702503 (Version 3)
Quarter: 2015Q4

REPORT INFORMATION
  Report Type: Spontaneous
  Country: IT (occurrence: IT)
  Receive Date: 20151105
  Receipt Date: 20151124
  Transmission Date: 20160304
  Serious: Yes (Hospitalization)
  Sender: FDA-Public Use
  Company Number: IT-SA-2015SA176906

PATIENT
  Age: 85 Year
  Sex: Female

DRUGS (9)
  1. RAMIPRIL. [Suspect]
     Active Substance: RAMIPRIL
     Indication: HYPERTENSION
     Route: 048
     Dates: start: 20100101, end: 20150521
  2. PRITORPLUS [Suspect]
     Active Substance: HYDROCHLOROTHIAZIDE\TELMISARTAN
     Indication: HYPERTENSION
     Route: 048
     Dates: start: 20100101, end: 20150521
  3. CARDIOASPIRIN [Concomitant]
     Active Substance: ASPIRIN
     Route: 048
  4. RAMIPRIL. [Suspect]
     Active Substance: RAMIPRIL
     Indication: HYPERTENSION
     Route: 048
     Dates: start: 20100101, end: 20150521
  5. LASIX [Suspect]
     Active Substance: FUROSEMIDE
     Indication: HYPERTENSION
     Route: 048
     Dates: start: 20100101, end: 20150521
  6. NEXIUM [Concomitant]
     Active Substance: ESOMEPRAZOLE MAGNESIUM
     Route: 048
  7. LASIX [Suspect]
     Active Substance: FUROSEMIDE
     Indication: HYPERTENSION
     Route: 048
     Dates: start: 20100101, end: 20150521
  8. PRITORPLUS [Suspect]
     Active Substance: HYDROCHLOROTHIAZIDE\TELMISARTAN
     Indication: HYPERTENSION
     Route: 048
     Dates: start: 20100101, end: 20150521
  9. LOBIVON [Concomitant]
     Active Substance: NEBIVOLOL HYDROCHLORIDE
     Route: 048

REACTIONS (2)
  - Oedema peripheral [Recovering/Resolving]
  - Electrolyte imbalance [Recovering/Resolving]

NARRATIVE: CASE EVENT DATE: 20150521
